FAERS Safety Report 21368880 (Version 2)
Quarter: 2023Q2

REPORT INFORMATION
  Report Type: Report from Study
  Country: GR (occurrence: GR)
  Receive Date: 20220923
  Receipt Date: 20230427
  Transmission Date: 20230721
  Serious: Yes (Hospitalization)
  Sender: FDA-Public Use
  Company Number: GR-ABBVIE-4128822

PATIENT
  Age: 75 Year
  Sex: Female
  Weight: 95 kg

DRUGS (5)
  1. CARBIDOPA\LEVODOPA [Suspect]
     Active Substance: CARBIDOPA\LEVODOPA
     Indication: Parkinson^s disease
     Dosage: MORNING DOSE: 11 ML; CONTINUOUS RATE: 3.7 ML/H; EXTRA DOSE: 2 ML
     Route: 050
     Dates: start: 20220406
  2. CARBIDOPA\LEVODOPA [Suspect]
     Active Substance: CARBIDOPA\LEVODOPA
     Dosage: MORNING DOSE: 11 ML; CONTINUOUS RATE: 3.9 ML/H; EXTRA DOSE: 2.0 ML
     Route: 050
  3. MATEVER [Concomitant]
     Indication: Product used for unknown indication
     Dosage: FORM STRENGTH: 1000 MG
     Route: 048
  4. PRAMIPEXOLE [Concomitant]
     Active Substance: PRAMIPEXOLE
     Indication: Product used for unknown indication
     Dosage: 0.7MG
     Route: 048
  5. SYMMETREL [Concomitant]
     Active Substance: AMANTADINE HYDROCHLORIDE
     Indication: Product used for unknown indication
     Route: 048

REACTIONS (6)
  - Joint injury [Recovered/Resolved]
  - Dizziness [Unknown]
  - Bedridden [Recovered/Resolved]
  - Hypoaesthesia [Unknown]
  - Urinary tract infection [Unknown]
  - Fall [Recovered/Resolved]

NARRATIVE: CASE EVENT DATE: 20220901
